FAERS Safety Report 6610429-9 (Version None)
Quarter: 2010Q1

REPORT INFORMATION
  Report Type: 
  Country: None (occurrence: None)
  Receive Date: 20100302
  Receipt Date: 20100204
  Transmission Date: 20100710
  Serious: Yes (Hospitalization, Other)
  Sender: FDA-Public Use
  Company Number: AT-B.I. PHARMACEUTICALS,INC./RIDGEFIELD-2007-BE-00020BE

PATIENT
  Sex: Male

DRUGS (27)
  1. SIFROL -  0,35 MG - TABLETTEN [Suspect]
     Indication: PARKINSON'S DISEASE
     Dosage: 1.05 MG
     Route: 048
     Dates: start: 20021001, end: 20031201
  2. SIFROL -  0,35 MG - TABLETTEN [Suspect]
     Dosage: 1.575 MG
     Route: 048
     Dates: start: 20031201, end: 20060101
  3. SIFROL -  0,35 MG - TABLETTEN [Suspect]
     Dosage: 1.225 MG
     Route: 048
     Dates: start: 20060201, end: 20060601
  4. SIFROL -  0,35 MG - TABLETTEN [Suspect]
     Dosage: 0.54 MG
     Route: 048
     Dates: start: 20021001, end: 20021001
  5. MADOPAR [Suspect]
     Indication: PARKINSON'S DISEASE
     Dosage: 150 MG
     Route: 048
     Dates: start: 20040101, end: 20060601
  6. PK-MERZ [Suspect]
     Dates: start: 20040101, end: 20060601
  7. SUPRESSIN [Concomitant]
     Dosage: 2 MG
  8. SELOKEN [Concomitant]
     Dosage: 95 MG
     Route: 048
  9. ALNA R [Concomitant]
     Dosage: 0.4 MG
     Route: 048
  10. ACECOMBSEMI [Concomitant]
  11. CIPRALEX [Concomitant]
     Dosage: 10 MG
  12. FLURPAX [Concomitant]
     Dosage: 0.05 MG
  13. LASIX [Concomitant]
     Dosage: 40 MG
  14. KCL RET. [Concomitant]
  15. PERIDOL [Concomitant]
     Dosage: 10 MG
     Route: 048
  16. ASPIRIN [Concomitant]
  17. SEROPRAM [Concomitant]
     Dosage: 20 MG
  18. DIGIMERCK [Concomitant]
     Dosage: ON DEMAND
  19. THYREX [Concomitant]
  20. PLENDIL RET. [Concomitant]
     Dosage: 10 MG
  21. TROMCARDIN DRG. [Concomitant]
  22. PK-MERZ INFUSIONS [Concomitant]
     Route: 042
     Dates: start: 20031213, end: 20031222
  23. PK-MERZ INFUSIONS [Concomitant]
     Dosage: 1000 ML
     Route: 042
     Dates: start: 20031201, end: 20040101
  24. LOVENOX [Concomitant]
     Indication: THROMBOSIS PROPHYLAXIS
     Dosage: 40 MG
     Route: 058
     Dates: start: 20020101, end: 20020101
  25. PANTOPRAZOLE [Concomitant]
     Dosage: 40 MG
  26. MIANSERIN [Concomitant]
     Dosage: 30 MG
     Dates: start: 20050101
  27. AGOPTON [Concomitant]
     Dosage: 15 MG
     Dates: start: 20060101

REACTIONS (29)
  - ABNORMAL BEHAVIOUR [None]
  - AGGRESSION [None]
  - AMNESIA [None]
  - ARTHRALGIA [None]
  - CARDIAC FAILURE [None]
  - CHOLELITHIASIS [None]
  - CONFUSIONAL STATE [None]
  - CONSTIPATION [None]
  - CORONARY ARTERY DISEASE [None]
  - DISORIENTATION [None]
  - FALL [None]
  - HALLUCINATION, VISUAL [None]
  - HEPATIC STEATOSIS [None]
  - HYPOKALAEMIA [None]
  - IMPULSE-CONTROL DISORDER [None]
  - INGUINAL HERNIA [None]
  - MENTAL DISORDER [None]
  - MUSCULOSKELETAL PAIN [None]
  - OBSESSIVE-COMPULSIVE DISORDER [None]
  - OEDEMA PERIPHERAL [None]
  - PARKINSON'S DISEASE [None]
  - PATHOLOGICAL GAMBLING [None]
  - PERSONALITY CHANGE [None]
  - PLEURAL EFFUSION [None]
  - SENSORY LOSS [None]
  - SLEEP DISORDER [None]
  - SUDDEN ONSET OF SLEEP [None]
  - TENDON RUPTURE [None]
  - WEIGHT INCREASED [None]
